FAERS Safety Report 7744356-0 (Version None)
Quarter: 2011Q3

REPORT INFORMATION
  Report Type: 
  Country: None (occurrence: None)
  Receive Date: 20110825
  Receipt Date: 20110819
  Transmission Date: 20111222
  Serious: Yes (Other)
  Sender: FDA-Public Use
  Company Number: 2011SP037532

PATIENT
  Age: 46 Year
  Sex: Male

DRUGS (7)
  1. DESLORATADINE [Suspect]
  2. CACIT D3 (LEKOVIT CA) [Suspect]
  3. PREVISCAN (FLUINDIONE) [Suspect]
  4. VANDETANIB [Suspect]
     Indication: THYROID CANCER
     Dosage: 300 MG;PO 200 MG;PO
     Route: 048
     Dates: start: 20110411, end: 20110701
  5. VANDETANIB [Suspect]
     Indication: THYROID CANCER
     Dosage: 300 MG;PO 200 MG;PO
     Route: 048
     Dates: start: 20110701, end: 20110720
  6. LEVOTHYROXINE SODIUM [Suspect]
  7. NEXIUM [Suspect]

REACTIONS (7)
  - BLOOD CALCITONIN INCREASED [None]
  - CARCINOEMBRYONIC ANTIGEN INCREASED [None]
  - ELECTROCARDIOGRAM QT PROLONGED [None]
  - ALANINE AMINOTRANSFERASE INCREASED [None]
  - BLOOD PRESSURE SYSTOLIC INCREASED [None]
  - ASPARTATE AMINOTRANSFERASE INCREASED [None]
  - BLOOD THYROID STIMULATING HORMONE INCREASED [None]
